FAERS Safety Report 9267400 (Version 3)
Quarter: 2013Q2

REPORT INFORMATION
  Report Type: Spontaneous
  Country: DE (occurrence: DE)
  Receive Date: 20130502
  Receipt Date: 20130522
  Transmission Date: 20140414
  Serious: Yes (Death, Congenital Anomaly)
  Sender: FDA-Public Use
  Company Number: DE-JNJFOC-20130416469

PATIENT
  Sex: Male
  Weight: .6 kg

DRUGS (6)
  1. IBUPROFEN [Suspect]
     Indication: FOETAL EXPOSURE DURING PREGNANCY
     Route: 064
     Dates: start: 20120301, end: 20120925
  2. DAIVOBET [Suspect]
     Indication: FOETAL EXPOSURE DURING PREGNANCY
     Route: 064
     Dates: start: 20120201
  3. FOLIO FORTE [Suspect]
     Indication: FOETAL EXPOSURE DURING PREGNANCY
     Dosage: 0.8-0.4MG/DAY
     Route: 064
     Dates: start: 20120201
  4. KADEFUNGIN [Suspect]
     Indication: FOETAL EXPOSURE DURING PREGNANCY
     Route: 064
  5. MIFEGYNE [Suspect]
     Indication: FOETAL EXPOSURE DURING PREGNANCY
     Route: 064
     Dates: start: 20120925, end: 20120925
  6. CYTOTEC [Suspect]
     Indication: FOETAL EXPOSURE DURING PREGNANCY
     Route: 064
     Dates: start: 20120925, end: 20120925

REACTIONS (8)
  - Foetal hypokinesia [Unknown]
  - Foetal growth restriction [Fatal]
  - Skeletal dysplasia [Fatal]
  - Maternal drugs affecting foetus [None]
  - Ventricular septal defect [None]
  - Oligohydramnios [None]
  - Abortion induced [None]
  - Placental insufficiency [None]
